FAERS Safety Report 10105986 (Version 2)
Quarter: 2014Q3

REPORT INFORMATION
  Report Type: Other
  Country: US (occurrence: US)
  Receive Date: 20140424
  Receipt Date: 20140826
  Transmission Date: 20150326
  Serious: Yes (Hospitalization, Other)
  Sender: FDA-Public Use
  Company Number: US-GSKPPD-2014GSK004001

PATIENT
  Age: 49 Year
  Sex: Female

DRUGS (5)
  1. TRICOR [Concomitant]
     Active Substance: FENOFIBRATE
  2. AVANDIA [Suspect]
     Active Substance: ROSIGLITAZONE MALEATE
     Indication: DIABETES MELLITUS
     Dosage: DATES OF AVANDIA USE COULD NOT BE CONFIRMED IN RECORDS REVIEWED.
     Route: 048
  3. LASIX [Concomitant]
     Active Substance: FUROSEMIDE
  4. ZOCOR [Concomitant]
     Active Substance: SIMVASTATIN
  5. MONOPRIL [Concomitant]
     Active Substance: FOSINOPRIL SODIUM

REACTIONS (3)
  - Coronary artery disease [Recovered/Resolved]
  - Cerebrovascular accident [None]
  - Angina pectoris [Recovered/Resolved]

NARRATIVE: CASE EVENT DATE: 20010913
